FAERS Safety Report 6810102-8 (Version None)
Quarter: 2010Q2

REPORT INFORMATION
  Report Type: 
  Country: None (occurrence: None)
  Receive Date: 20100630
  Receipt Date: 20100622
  Transmission Date: 20101027
  Serious: Yes (Hospitalization)
  Sender: FDA-Public Use
  Company Number: US-WATSON-2010-08434

PATIENT
  Age: 57 Year
  Sex: Male

DRUGS (1)
  1. FENTANYL-50 [Suspect]
     Indication: PAIN
     Dosage: 1 PATCH, Q 3 DAYS
     Route: 062
     Dates: start: 20100601

REACTIONS (3)
  - DRUG INEFFECTIVE [None]
  - GASTRIC ULCER [None]
  - NAUSEA [None]
